FAERS Safety Report 10734209 (Version 3)
Quarter: 2015Q1

REPORT INFORMATION
  Report Type: Spontaneous
  Country: IT (occurrence: IT)
  Receive Date: 20150123
  Receipt Date: 20150218
  Transmission Date: 20150721
  Serious: Yes (Hospitalization)
  Sender: FDA-Public Use
  Company Number: IT-ASTRAZENECA-2015SE05463

PATIENT
  Age: 18317 Day
  Sex: Female
  Weight: 70 kg

DRUGS (4)
  1. CONGESCOR [Suspect]
     Active Substance: BISOPROLOL
     Route: 048
     Dates: start: 20141223, end: 20141230
  2. CONGESCOR [Suspect]
     Active Substance: BISOPROLOL
     Route: 048
     Dates: start: 20141230
  3. BRILIQUE [Suspect]
     Active Substance: TICAGRELOR
     Indication: ANTICOAGULANT THERAPY
     Route: 048
     Dates: start: 20141230, end: 20141230
  4. CONGESCOR [Suspect]
     Active Substance: BISOPROLOL
     Route: 048

REACTIONS (5)
  - Vision blurred [Recovered/Resolved]
  - Dyspnoea [Recovered/Resolved]
  - Sinus bradycardia [Recovered/Resolved]
  - Asthenia [Recovered/Resolved]
  - Vertigo [Recovered/Resolved]

NARRATIVE: CASE EVENT DATE: 20141230
